FAERS Safety Report 9198519 (Version 2)
Quarter: 2013Q2

REPORT INFORMATION
  Report Type: Spontaneous
  Country: CL (occurrence: CL)
  Receive Date: 20130329
  Receipt Date: 20130514
  Transmission Date: 20140414
  Serious: Yes (Hospitalization, Other)
  Sender: FDA-Public Use
  Company Number: PHHY2013CL030750

PATIENT
  Age: 49 Year
  Sex: Male

DRUGS (4)
  1. LEPONEX / CLOZARIL (CLOZAPINE) [Suspect]
     Indication: SCHIZOPHRENIA
     Dosage: 300 MG, QD
  2. LEPONEX / CLOZARIL (CLOZAPINE) [Suspect]
     Dosage: UNK
  3. PAROXETINE [Concomitant]
     Dosage: UNK UKN, UNK
  4. METFORMINE [Concomitant]
     Dosage: UNK UKN, UNK

REACTIONS (6)
  - Disease recurrence [Unknown]
  - Meningitis [Unknown]
  - Ear infection [Unknown]
  - Mental disorder [Unknown]
  - Haematocrit decreased [Unknown]
  - White blood cell count increased [Unknown]
